FAERS Safety Report 6356721-7 (Version None)
Quarter: 2009Q3

REPORT INFORMATION
  Report Type: 
  Country: None (occurrence: None)
  Receive Date: 20090914
  Receipt Date: 20090914
  Transmission Date: 20100115
  Serious: No
  Sender: FDA-Public Use
  Company Number: None

PATIENT
  Age: 55 Year
  Sex: Female
  Weight: 74.3899 kg

DRUGS (1)
  1. LEVAQUIN [Suspect]
     Indication: CYSTITIS
     Dosage: NOT KNOWN NOT KNOWN OROPHARINGEAL
     Route: 049
     Dates: start: 20030930, end: 20031007

REACTIONS (9)
  - ABASIA [None]
  - ARTHRALGIA [None]
  - EXOSTOSIS [None]
  - GALLBLADDER DISORDER [None]
  - INSOMNIA [None]
  - JOINT RANGE OF MOTION DECREASED [None]
  - MUSCULOSKELETAL PAIN [None]
  - SKIN ULCER [None]
  - TENDONITIS [None]
